FAERS Safety Report 9970846 (Version 2)
Quarter: 2014Q1

REPORT INFORMATION
  Report Type: Report from Study
  Country: US (occurrence: US)
  Receive Date: 20140306
  Receipt Date: 20140306
  Transmission Date: 20141002
  Serious: No
  Sender: FDA-Public Use
  Company Number: US-ABBVIE-13P-163-1139303-00

PATIENT
  Age: 59 Year
  Sex: Male

DRUGS (8)
  1. HUMIRA [Suspect]
     Indication: COLITIS ULCERATIVE
     Dates: start: 20130824, end: 20130824
  2. HUMIRA [Suspect]
     Dates: start: 20130825, end: 20130825
  3. HUMIRA [Suspect]
     Dates: start: 20130907, end: 20130907
  4. HUMIRA [Suspect]
  5. LOMOTIL [Concomitant]
     Indication: COLITIS ULCERATIVE
  6. CARDIZEM [Concomitant]
     Indication: HYPERTENSION
     Dosage: 360MG DAILY
  7. METOPROLOL [Concomitant]
     Indication: HYPERTENSION
     Dosage: 25MG DAILY
  8. ATORVASTATIN [Concomitant]
     Indication: BLOOD CHOLESTEROL INCREASED
     Dosage: 20MG DAILY

REACTIONS (2)
  - Injection site bruising [Recovered/Resolved]
  - Injection site haemorrhage [Not Recovered/Not Resolved]
